FAERS Safety Report 16094944 (Version 1)
Quarter: 2019Q2

REPORT INFORMATION
  Report Type: Spontaneous
  Country: US (occurrence: US)
  Receive Date: 20190320
  Receipt Date: 20190320
  Transmission Date: 20190711
  Serious: Yes (Disabling)
  Sender: FDA-Public Use
  Company Number: None

PATIENT
  Age: 61 Year
  Sex: Male
  Weight: 83.25 kg

DRUGS (9)
  1. VALIUM [Concomitant]
     Active Substance: DIAZEPAM
  2. CPAP [Concomitant]
     Active Substance: DEVICE
  3. VITAMIN C [Concomitant]
     Active Substance: ASCORBIC ACID
  4. VITAMIN D NOS [Concomitant]
     Active Substance: VITAMIN D NOS
  5. EMGALITY [Suspect]
     Active Substance: GALCANEZUMAB-GNLM
     Indication: MIGRAINE
     Dosage: ?          QUANTITY:2 INJECTION(S);OTHER FREQUENCY:ONCE MONTHLY;OTHER ROUTE:INJECTED IN THE BACK OF EACH ARM?
     Dates: start: 20190314
  6. FLEXERIL [Concomitant]
     Active Substance: CYCLOBENZAPRINE HYDROCHLORIDE
  7. COMPLEX B [Concomitant]
     Active Substance: CALCIUM PANTOTHENATE\CYANOCOBALAMIN\NIACINAMIDE\PYRIDOXINE HYDROCHLORIDE\RIBOFLAVIN\THIAMINE MONONITRATE
  8. SUMATRIPTAN. [Concomitant]
     Active Substance: SUMATRIPTAN
  9. FIBER FORMULA [Concomitant]

REACTIONS (12)
  - Sleep apnoea syndrome [None]
  - Chills [None]
  - Hyperhidrosis [None]
  - Raynaud^s phenomenon [None]
  - Dyspnoea [None]
  - Cough [None]
  - Arrhythmia [None]
  - Condition aggravated [None]
  - Poor quality sleep [None]
  - Feeling abnormal [None]
  - Anxiety [None]
  - Cold sweat [None]

NARRATIVE: CASE EVENT DATE: 20190317
